FAERS Safety Report 5885156-6 (Version None)
Quarter: 2008Q3

REPORT INFORMATION
  Report Type: 
  Country: None (occurrence: None)
  Receive Date: 20080916
  Receipt Date: 20080908
  Transmission Date: 20090109
  Serious: Yes (Other)
  Sender: FDA-Public Use
  Company Number: US-ASTRAZENECA-2008UW18699

PATIENT
  Age: 22473 Day
  Sex: Female

DRUGS (2)
  1. ZESTORETIC [Suspect]
     Indication: HYPERTENSION
     Route: 048
     Dates: start: 20030513, end: 20030604
  2. LIPITOR [Concomitant]

REACTIONS (3)
  - ANGIOEDEMA [None]
  - FACE OEDEMA [None]
  - NECK MASS [None]
